FAERS Safety Report 8985663 (Version 1)
Quarter: 2012Q4

REPORT INFORMATION
  Report Type: 
  Country: US (occurrence: US)
  Receive Date: 20121226
  Receipt Date: 20121226
  Transmission Date: 20130627
  Serious: No
  Sender: FDA-Public Use
  Company Number: US-PFIZER INC-2012322303

PATIENT
  Age: 63 Year
  Sex: Female
  Weight: 62.6 kg

DRUGS (3)
  1. PREMARIN [Suspect]
     Indication: VAGINAL DRYNESS
     Dosage: UNK, 2x/day
     Route: 067
     Dates: end: 20121101
  2. PREMARIN [Suspect]
     Indication: VAGINAL ITCHING
  3. PREMARIN [Concomitant]
     Dosage: UNK

REACTIONS (3)
  - Vulvovaginal dryness [Unknown]
  - Vulvovaginal pruritus [Unknown]
  - Vulvovaginal discomfort [Unknown]
